FAERS Safety Report 4975212-9 (Version None)
Quarter: 2006Q2

REPORT INFORMATION
  Report Type: 
  Country: None (occurrence: None)
  Receive Date: 20060411
  Receipt Date: 20060403
  Transmission Date: 20061013
  Serious: Yes (Hospitalization)
  Sender: FDA-Public Use
  Company Number: 223692

PATIENT
  Age: 69 Year
  Sex: Male

DRUGS (3)
  1. MABTHERA (RITUXIMAB) CONC FOR SOLUTION FOR INFUSION [Suspect]
     Indication: MANTLE CELL LYMPHOMA
  2. CYCLOPHOSPHAMIDE [Suspect]
     Indication: MANTLE CELL LYMPHOMA
     Dates: start: 20060315, end: 20060317
  3. FLUDARABINE [Suspect]
     Indication: MANTLE CELL LYMPHOMA
     Dates: start: 20060315, end: 20060317

REACTIONS (1)
  - PNEUMOCYSTIS JIROVECI PNEUMONIA [None]
